FAERS Safety Report 6450707-X (Version None)
Quarter: 2009Q4

REPORT INFORMATION
  Report Type: 
  Country: None (occurrence: None)
  Receive Date: 20091120
  Receipt Date: 20091120
  Transmission Date: 20100525
  Serious: Yes (Life-Threatening, Hospitalization)
  Sender: FDA-Public Use
  Company Number: None

PATIENT
  Sex: Female
  Weight: 43 kg

DRUGS (2)
  1. REMICADE [Suspect]
     Indication: CROHN'S DISEASE
     Dosage: 240 MG EVERY 8 WEEKS, IV DRIP
     Route: 041
     Dates: start: 20080501, end: 20091104
  2. METHOTREXATE [Suspect]
     Dosage: 15 MG WEEKLY PO
     Route: 048
     Dates: start: 20080101, end: 20091104

REACTIONS (3)
  - DIFFUSE LARGE B-CELL LYMPHOMA [None]
  - METASTASES TO BONE [None]
  - METASTASES TO BONE MARROW [None]
